FAERS Safety Report 8847624 (Version 1)
Quarter: 2012Q4

REPORT INFORMATION
  Report Type: 
  Country: US (occurrence: US)
  Receive Date: 20121018
  Receipt Date: 20121018
  Transmission Date: 20130627
  Serious: Yes (Other)
  Sender: FDA-Public Use
  Company Number: CHPA2012US021294

PATIENT
  Age: 72 Year
  Sex: Female
  Weight: 56.69 kg

DRUGS (2)
  1. EXCEDRIN EXTRA STRENGTH [Suspect]
     Indication: SOMNOLENCE
     Dosage: 1 caplet per week
     Route: 048
     Dates: start: 1984, end: 20121003
  2. CORTISONE [Suspect]
     Indication: ARTHRITIS
     Dosage: UNK
     Dates: start: 201203

REACTIONS (10)
  - Bunion [Recovered/Resolved]
  - Foot deformity [Recovered/Resolved]
  - Arthritis [Not Recovered/Not Resolved]
  - Rash [Recovered/Resolved]
  - Fungal infection [Not Recovered/Not Resolved]
  - Nausea [Recovered/Resolved]
  - Activities of daily living impaired [Recovered/Resolved]
  - Somnolence [Recovered/Resolved]
  - Feeling abnormal [Recovered/Resolved]
  - Off label use [Unknown]
